FAERS Safety Report 4414594-3 (Version None)
Quarter: 2004Q3

REPORT INFORMATION
  Report Type: 
  Country: None (occurrence: None)
  Receive Date: 20040729
  Receipt Date: 20040716
  Transmission Date: 20050211
  Serious: Yes (Hospitalization)
  Sender: FDA-Public Use
  Company Number: 2004-0006994

PATIENT
  Age: 53 Year
  Sex: Male
  Weight: 83.9154 kg

DRUGS (13)
  1. TENOFOVIR DISOPROXIL FUMARATE / EMTRICITABINE [Suspect]
     Indication: HIV INFECTION
     Dosage: 300 MG, 1 IN 1 D, ORAL
     Route: 048
     Dates: start: 20020121, end: 20030403
  2. KALETRA [Concomitant]
  3. 3TC (LAMIVUDINE) [Concomitant]
  4. DDI (DIDANOSINE) [Concomitant]
  5. VIRAMUNE [Concomitant]
  6. PREVACID [Concomitant]
  7. TESTOSTERONE [Concomitant]
  8. OXAZEPAM [Concomitant]
  9. ALPRAZOLAM [Concomitant]
  10. PROCHLORPERAZINE [Concomitant]
  11. SEPTRA DS [Concomitant]
  12. SEROSTIM [Concomitant]
  13. INDOMETHACIN [Concomitant]

REACTIONS (13)
  - ASTHENIA [None]
  - DYSPNOEA EXERTIONAL [None]
  - EXERCISE TEST ABNORMAL [None]
  - GASTROINTESTINAL DISORDER [None]
  - MUSCULOSKELETAL STIFFNESS [None]
  - MYALGIA [None]
  - NEPHROPATHY TOXIC [None]
  - PRESBYOPIA [None]
  - RENAL CELL CARCINOMA STAGE UNSPECIFIED [None]
  - RENAL TUBULAR DISORDER [None]
  - URINE ABNORMALITY [None]
  - VOMITING [None]
  - WEIGHT DECREASED [None]
